FAERS Safety Report 16641911 (Version 4)
Quarter: 2021Q1

REPORT INFORMATION
  Report Type: Spontaneous
  Country: CA (occurrence: CA)
  Receive Date: 20190729
  Receipt Date: 20210224
  Transmission Date: 20210419
  Serious: Yes (Other)
  Sender: FDA-Public Use
  Company Number: CA-PFIZER INC-2017124470

PATIENT
  Age: 52 Year
  Sex: Female

DRUGS (5)
  1. IBRANCE [Suspect]
     Active Substance: PALBOCICLIB
     Dosage: 100 MG, CYCLIC (DAILY FOR 21 DAYS, THEN STOP FOR 7 DAYS)
     Route: 048
     Dates: start: 2017
  2. LUPRON [Concomitant]
     Active Substance: LEUPROLIDE ACETATE
     Dosage: UNK
  3. LETROZOLE. [Concomitant]
     Active Substance: LETROZOLE
     Indication: BREAST CANCER METASTATIC
     Dosage: 2.5 MG, UNK
  4. ZOMETA [Concomitant]
     Active Substance: ZOLEDRONIC ACID
     Dosage: UNK, CYCLIC (EVERY 6 MONTHS)
     Route: 042
     Dates: start: 20170307
  5. IBRANCE [Suspect]
     Active Substance: PALBOCICLIB
     Indication: BREAST CANCER METASTATIC
     Dosage: 125 MG, CYCLIC (DAILY, 21 DAYS ON, OFF FOR 7 DAYS, REPEAT)
     Route: 048
     Dates: start: 20170208, end: 2017

REACTIONS (47)
  - Skin hypertrophy [Unknown]
  - Ear pain [Unknown]
  - Chest discomfort [Unknown]
  - Anaemia [Unknown]
  - Myelosuppression [Unknown]
  - Off label use [Unknown]
  - Circumstance or information capable of leading to medication error [Unknown]
  - Breast mass [Unknown]
  - Sensory disturbance [Recovering/Resolving]
  - Neutropenia [Unknown]
  - Abdominal pain [Recovered/Resolved]
  - Hot flush [Not Recovered/Not Resolved]
  - Gastrointestinal stoma output increased [Unknown]
  - Blood urea increased [Unknown]
  - Stoma site haemorrhage [Unknown]
  - Neutrophil count decreased [Recovered/Resolved]
  - Nausea [Unknown]
  - Weight increased [Unknown]
  - Stoma site pain [Unknown]
  - Alanine aminotransferase increased [Unknown]
  - Neuropathy peripheral [Unknown]
  - Product use issue [Unknown]
  - Fatigue [Not Recovered/Not Resolved]
  - Back pain [Unknown]
  - Abdominal distension [Unknown]
  - Upper-airway cough syndrome [Unknown]
  - Tinnitus [Unknown]
  - Musculoskeletal chest pain [Recovered/Resolved]
  - Cough [Unknown]
  - Leukopenia [Unknown]
  - Stoma site irritation [Unknown]
  - Myalgia [Unknown]
  - Vulvovaginal dryness [Unknown]
  - Abdominal discomfort [Recovered/Resolved]
  - Anxiety [Unknown]
  - Joint stiffness [Unknown]
  - Full blood count decreased [Unknown]
  - Laboratory test abnormal [Unknown]
  - Skin exfoliation [Unknown]
  - Gastrointestinal stoma complication [Unknown]
  - Dry skin [Unknown]
  - Abdominal pain upper [Unknown]
  - Night sweats [Unknown]
  - Emotional disorder [Unknown]
  - Alopecia [Not Recovered/Not Resolved]
  - Arthralgia [Unknown]
  - Neck pain [Unknown]

NARRATIVE: CASE EVENT DATE: 2017
